FAERS Safety Report 23890420 (Version 1)
Quarter: 2024Q2

REPORT INFORMATION
  Report Type: Spontaneous
  Country: US (occurrence: US)
  Receive Date: 20240523
  Receipt Date: 20240523
  Transmission Date: 20240715
  Serious: Yes (Other)
  Sender: FDA-Public Use
  Company Number: US-FreseniusKabi-FK202408005

PATIENT
  Age: 36 Year
  Sex: Female

DRUGS (8)
  1. ETOPOSIDE [Suspect]
     Active Substance: ETOPOSIDE
     Indication: Primary mediastinal large B-cell lymphoma
     Dosage: DA-REPOCH AT 18WEEKS THROUGH A RIGHT ARM PERIPHERALLY INSERTED CENTRAL CATHETER(PICC) LINE. ?COMPLET
  2. DOXORUBICIN [Suspect]
     Active Substance: DOXORUBICIN
     Indication: Primary mediastinal large B-cell lymphoma
     Dosage: DA-REPOCH AT 18WEEKS THROUGH A RIGHT ARM PERIPHERALLY INSERTED CENTRAL CATHETER(PICC) LINE. ?COMPLET
  3. RITUXIMAB [Suspect]
     Active Substance: RITUXIMAB
     Indication: Primary mediastinal large B-cell lymphoma
     Dosage: DA-REPOCH AT 18WEEKS THROUGH A RIGHT ARM PERIPHERALLY INSERTED CENTRAL CATHETER(PICC) LINE?6 CYCLES
  4. PREDNISONE [Suspect]
     Active Substance: PREDNISONE
     Indication: Primary mediastinal large B-cell lymphoma
     Dosage: DA-REPOCH AT 18WEEKS THROUGH A RIGHT ARM PERIPHERALLY INSERTED CENTRAL CATHETER(PICC) LINE?6 CYCLES
  5. VINCRISTINE [Suspect]
     Active Substance: VINCRISTINE
     Indication: Primary mediastinal large B-cell lymphoma
     Dosage: DA-REPOCH AT 18WEEKS THROUGH A RIGHT ARM PERIPHERALLY INSERTED CENTRAL CATHETER(PICC) LINE?6 CYCLES
  6. CYCLOPHOSPHAMIDE [Suspect]
     Active Substance: CYCLOPHOSPHAMIDE
     Indication: Primary mediastinal large B-cell lymphoma
     Dosage: DA-REPOCH AT 18WEEKS THROUGH A RIGHT ARM PERIPHERALLY INSERTED CENTRAL CATHETER(PICC) LINE?6 CYCLES
  7. UNSPECIFIED INGREDIENT [Suspect]
     Active Substance: UNSPECIFIED INGREDIENT
     Indication: Pericarditis
  8. UNSPECIFIED INGREDIENT [Suspect]
     Active Substance: UNSPECIFIED INGREDIENT
     Indication: Pericardial effusion malignant

REACTIONS (4)
  - Pericardial effusion malignant [Recovering/Resolving]
  - Pericarditis [Recovering/Resolving]
  - Mucosal inflammation [Unknown]
  - Maternal exposure during pregnancy [Unknown]
